FAERS Safety Report 5818658-9 (Version None)
Quarter: 2008Q3

REPORT INFORMATION
  Report Type: 
  Country: None (occurrence: None)
  Receive Date: 20080721
  Receipt Date: 20080721
  Transmission Date: 20090109
  Serious: No
  Sender: FDA-Public Use
  Company Number: None

PATIENT
  Age: 46 Year
  Sex: Female

DRUGS (1)
  1. ABILIFY [Suspect]
     Indication: DEPRESSION
     Dosage: 2 MG 1/2 - 1 TAB PO QHS
     Route: 048
     Dates: start: 20080625, end: 20080721

REACTIONS (2)
  - CARPAL TUNNEL SYNDROME [None]
  - VISION BLURRED [None]
